FAERS Safety Report 5553637-0 (Version None)
Quarter: 2007Q4

REPORT INFORMATION
  Report Type: 
  Country: None (occurrence: None)
  Receive Date: 20071213
  Receipt Date: 20071212
  Transmission Date: 20080405
  Serious: Yes (Other)
  Sender: FDA-Public Use
  Company Number: PHBS2007CH19930

PATIENT
  Age: 52 Year
  Sex: Female

DRUGS (2)
  1. OXCARBAZEPINE [Suspect]
     Indication: TRIGEMINAL NEURALGIA
     Dosage: 600 MG, BID
  2. HEALING EARTH [Suspect]
     Dates: end: 20060215

REACTIONS (2)
  - DRUG INTERACTION [None]
  - TRIGEMINAL NEURALGIA [None]
